FAERS Safety Report 8625484-4 (Version None)
Quarter: 2012Q3

REPORT INFORMATION
  Report Type: 
  Country: None (occurrence: None)
  Receive Date: 20120827
  Receipt Date: 20120201
  Transmission Date: 20120928
  Serious: Yes (Other)
  Sender: FDA-Public Use
  Company Number: BR-ROCHE-1036185

PATIENT
  Sex: Male
  Weight: 64 kg

DRUGS (3)
  1. GEMFIBROZIL [Suspect]
     Indication: BLOOD TRIGLYCERIDES
  2. XALCOM [Suspect]
     Indication: GLAUCOMA
  3. CLONAZEPAM [Suspect]
     Indication: INSOMNIA RELATED TO ANOTHER MENTAL CONDITION
     Route: 048
     Dates: start: 19890101

REACTIONS (3)
  - DIZZINESS [None]
  - CONVULSION [None]
  - NECK PAIN [None]
